FAERS Safety Report 7531334-X (Version None)
Quarter: 2011Q2

REPORT INFORMATION
  Report Type: 
  Country: None (occurrence: None)
  Receive Date: 20110608
  Receipt Date: 20110524
  Transmission Date: 20111010
  Serious: Yes (Other)
  Sender: FDA-Public Use
  Company Number: US-SOLVAY-00211004187

PATIENT
  Age: 64 Year
  Sex: Male
  Weight: 109.09 kg

DRUGS (2)
  1. ANDROGEL [Suspect]
     Indication: BLOOD TESTOSTERONE DECREASED
     Dosage: DAILY DOSE: 5 GRAM(S)
     Route: 062
     Dates: start: 20030101, end: 20100101
  2. ANDROGEL [Suspect]
     Dosage: DAILY DOSE:  UNKNOWN
     Route: 062
     Dates: start: 20100101

REACTIONS (6)
  - SKIN DISCOLOURATION [None]
  - HEPATIC FUNCTION ABNORMAL [None]
  - BLOOD IRON DECREASED [None]
  - HAEMOGLOBIN INCREASED [None]
  - ASTHENIA [None]
  - RENAL IMPAIRMENT [None]
